FAERS Safety Report 11874562 (Version 1)
Quarter: 2015Q4

REPORT INFORMATION
  Report Type: Spontaneous
  Country: US (occurrence: None)
  Receive Date: 20151228
  Receipt Date: 20151228
  Transmission Date: 20160305
  Serious: No
  Sender: FDA-Public Use
  Company Number: None

PATIENT
  Age: 53 Year
  Sex: Male
  Weight: 81.65 kg

DRUGS (3)
  1. VALSARTAN. [Concomitant]
     Active Substance: VALSARTAN
  2. AMOXICILLIN 875 875 MGM WESTWARD [Suspect]
     Active Substance: AMOXICILLIN
     Indication: PHARYNGEAL DISORDER
     Route: 048
     Dates: start: 20140710, end: 20140711
  3. HCTZ [Concomitant]
     Active Substance: HYDROCHLOROTHIAZIDE

REACTIONS (3)
  - Wrong device used [None]
  - Device use error [None]
  - Blood gases abnormal [None]

NARRATIVE: CASE EVENT DATE: 20150710
